FAERS Safety Report 13182517 (Version 16)
Quarter: 2020Q2

REPORT INFORMATION
  Report Type: Spontaneous
  Country: US (occurrence: US)
  Receive Date: 20170203
  Receipt Date: 20200601
  Transmission Date: 20200713
  Serious: Yes (Hospitalization, Other)
  Sender: FDA-Public Use
  Company Number: US-PFIZER INC-2017042360

PATIENT
  Age: 80 Year
  Sex: Female
  Weight: 68 kg

DRUGS (6)
  1. IBRANCE [Suspect]
     Active Substance: PALBOCICLIB
     Dosage: UNK, CYCLIC (21 DAYS THEN 7 DAYS OFF)
     Dates: start: 201610
  2. IBRANCE [Suspect]
     Active Substance: PALBOCICLIB
     Dosage: 125 MG, UNK
     Dates: start: 20151217
  3. IBRANCE [Suspect]
     Active Substance: PALBOCICLIB
     Indication: BREAST CANCER METASTATIC
     Dosage: 125 MG, CYCLIC (21 DAYS ON AND 7 DAYS OFF)
     Route: 048
     Dates: start: 201511
  4. FASLODEX [Concomitant]
     Active Substance: FULVESTRANT
     Indication: METASTASES TO BONE
     Dosage: UNK, EVERY 3 MONTHS
     Dates: start: 201610
  5. ZOMETA [Concomitant]
     Active Substance: ZOLEDRONIC ACID
     Dosage: UNK, MONTHLY (TAKES ONCE A MONTH ONCE EVERY 21 DAYS SOMETHING LIKE THAT.)
     Route: 041
     Dates: start: 201511
  6. ZOMETA [Concomitant]
     Active Substance: ZOLEDRONIC ACID
     Dosage: UNK
     Dates: start: 201610

REACTIONS (11)
  - COVID-19 [Unknown]
  - Rash [Recovered/Resolved]
  - Hypoacusis [Unknown]
  - Asthenia [Unknown]
  - Malaise [Unknown]
  - Neoplasm progression [Unknown]
  - Decreased immune responsiveness [Not Recovered/Not Resolved]
  - Oral herpes [Not Recovered/Not Resolved]
  - Myocardial infarction [Unknown]
  - Rash pruritic [Unknown]
  - Product dose omission [Unknown]

NARRATIVE: CASE EVENT DATE: 201612
